FAERS Safety Report 10425030 (Version 5)
Quarter: 2014Q4

REPORT INFORMATION
  Report Type: Spontaneous
  Country: US (occurrence: US)
  Receive Date: 20140902
  Receipt Date: 20141224
  Transmission Date: 20150528
  Serious: No
  Sender: FDA-Public Use
  Company Number: US-PFIZER INC-2014239442

PATIENT
  Sex: Male

DRUGS (1)
  1. BENEFIX [Suspect]
     Active Substance: COAGULATION FACTOR IX RECOMBINANT HUMAN\ISOPROPYL ALCOHOL
     Dosage: UNK

REACTIONS (3)
  - Diarrhoea [Unknown]
  - Abdominal discomfort [Unknown]
  - Malaise [Unknown]
